FAERS Safety Report 4455181-0 (Version None)
Quarter: 2004Q3

REPORT INFORMATION
  Report Type: 
  Country: None (occurrence: None)
  Receive Date: 20040917
  Receipt Date: 20040901
  Transmission Date: 20050211
  Serious: Yes (Hospitalization)
  Sender: FDA-Public Use
  Company Number: B0260076A

PATIENT
  Age: 70 Year
  Sex: Male
  Weight: 42.4113 kg

DRUGS (13)
  1. VALTREX [Suspect]
     Indication: HERPES ZOSTER
     Dosage: SEE DOSAGE TEXT ORAL
     Route: 048
     Dates: start: 20020131, end: 20020202
  2. MADOPAR [Concomitant]
  3. NIFEDIPINE [Concomitant]
  4. CANDESARTAN CILEXETIL [Concomitant]
  5. TRIAZOLAM [Concomitant]
  6. PURSENNID [Concomitant]
  7. RANITIDINE HYDROCHLORIDE [Concomitant]
  8. EBASTINE [Concomitant]
  9. TEPRENONE [Concomitant]
  10. MOSAPRIDE CITRATE [Concomitant]
  11. CALCIUM CARBONATE [Concomitant]
  12. BROMOCRIPTNE MESYLATE [Concomitant]
  13. HUMAN INT/LONG INSULIN [Concomitant]

REACTIONS (9)
  - ABNORMAL BEHAVIOUR [None]
  - AFFECT LABILITY [None]
  - BLOOD GLUCOSE INCREASED [None]
  - DELIRIUM [None]
  - DEPRESSED LEVEL OF CONSCIOUSNESS [None]
  - DISORIENTATION [None]
  - DRUG TOXICITY [None]
  - REFLUX OESOPHAGITIS [None]
  - SPEECH DISORDER [None]
